FAERS Safety Report 9324185 (Version 2)
Quarter: 2013Q3

REPORT INFORMATION
  Report Type: Spontaneous
  Country: US (occurrence: US)
  Receive Date: 20130603
  Receipt Date: 20130719
  Transmission Date: 20140515
  Serious: Yes (Hospitalization, Other)
  Sender: FDA-Public Use
  Company Number: US-NOVOPROD-378886

PATIENT
  Age: 6 Year
  Sex: Female

DRUGS (1)
  1. NORDITROPIN FLEXPRO 6.7 MG/ML [Suspect]
     Indication: DWARFISM
     Dosage: 0.55 MG QD
     Route: 058
     Dates: start: 201301

REACTIONS (2)
  - Convulsion [Recovering/Resolving]
  - Coma [Recovered/Resolved]
